FAERS Safety Report 8535039-8 (Version None)
Quarter: 2012Q3

REPORT INFORMATION
  Report Type: 
  Country: None (occurrence: None)
  Receive Date: 20120724
  Receipt Date: 20120718
  Transmission Date: 20120928
  Serious: No
  Sender: FDA-Public Use
  Company Number: US-PFIZER INC-2012174347

PATIENT
  Sex: Female
  Weight: 77.098 kg

DRUGS (4)
  1. PRISTIQ [Suspect]
     Indication: DEPRESSION
     Dosage: 50 MG, 1X/DAY
     Route: 048
  2. BUPROPION [Concomitant]
     Dosage: UNK
  3. SPIRONOLACTONE [Concomitant]
     Indication: HYPERTENSION
     Dosage: UNK
  4. PRISTIQ [Suspect]
     Indication: ANXIETY
     Dosage: UNK
     Route: 048

REACTIONS (3)
  - MEDICATION RESIDUE [None]
  - CRYING [None]
  - MALABSORPTION [None]
